FAERS Safety Report 21247733 (Version 2)
Quarter: 2022Q3

REPORT INFORMATION
  Report Type: Spontaneous
  Country: US (occurrence: None)
  Receive Date: 20220824
  Receipt Date: 20220926
  Transmission Date: 20221026
  Serious: Yes (Hospitalization, Other)
  Sender: FDA-Public Use
  Company Number: US-Emmaus Medical, Inc.-EMM202111-000205

PATIENT
  Age: 59 Year
  Sex: Male

DRUGS (3)
  1. ENDARI [Suspect]
     Active Substance: GLUTAMINE
     Indication: Sickle cell disease
     Dosage: 15 G
     Route: 048
     Dates: start: 20180322
  2. ENDARI [Suspect]
     Active Substance: GLUTAMINE
     Dosage: 15 G
     Route: 048
     Dates: start: 2021
  3. ENDARI [Suspect]
     Active Substance: GLUTAMINE
     Dosage: 30 G (SIX PACKETS AROUND SAME TIME)
     Route: 048
     Dates: start: 20220914

REACTIONS (5)
  - Cardiac ablation [Unknown]
  - Sickle cell anaemia with crisis [Recovered/Resolved]
  - Decreased activity [Unknown]
  - Sickle cell disease [Unknown]
  - Feeling abnormal [Unknown]

NARRATIVE: CASE EVENT DATE: 20211122
